FAERS Safety Report 26069200 (Version 1)
Quarter: 2025Q4

REPORT INFORMATION
  Report Type: Other
  Country: CN (occurrence: CN)
  Receive Date: 20251120
  Receipt Date: 20251120
  Transmission Date: 20260118
  Serious: Yes (Hospitalization, Other)
  Sender: DEXCEL LTD.
  Company Number: CN-DEXPHARM-2025-5985

PATIENT
  Age: 70 Year
  Sex: Male

DRUGS (11)
  1. OMEPRAZOLE [Interacting]
     Active Substance: OMEPRAZOLE
     Dosage: 40 MG QD IV
     Dates: start: 20220603
  2. OXALIPLATIN [Interacting]
     Active Substance: OXALIPLATIN
     Dosage: 150 MG ST IV
     Dates: start: 20220603
  3. BEVACIZUMAB [Concomitant]
     Active Substance: BEVACIZUMAB
     Indication: Chemotherapy
     Dosage: 150 MG ST IV
     Dates: start: 20220604
  4. FLUOROURACIL\LEUCOVORIN CALCIUM\OXALIPLATIN [Concomitant]
     Active Substance: FLUOROURACIL\LEUCOVORIN CALCIUM\OXALIPLATIN
     Indication: Colorectal cancer
     Dosage: 150 MG ST IV
     Dates: start: 20220604
  5. METHYLPREDNISOLONE [Concomitant]
     Active Substance: METHYLPREDNISOLONE
     Dosage: 40MG ST IV
     Dates: start: 20220603
  6. LEUCOVORIN CALCIUM [Concomitant]
     Active Substance: LEUCOVORIN CALCIUM
     Dosage: 700 MG ST IV
     Dates: start: 20220603
  7. FLUOROURACIL [Concomitant]
     Active Substance: FLUOROURACIL
     Dosage: INJECTION 0.75 MG ST IV
     Dates: start: 20220603
  8. FLUOROURACIL [Concomitant]
     Active Substance: FLUOROURACIL
     Dosage: INJECTION 0.75 G ST IV + 4 G ST CIV46H
     Dates: start: 20220603
  9. VITAMIN C [Concomitant]
     Active Substance: ASCORBIC ACID
     Dosage: 1 G QD IV
     Dates: start: 20220603
  10. VITAMIN B6 [Concomitant]
     Active Substance: PYRIDOXINE HYDROCHLORIDE
     Dosage: 0.2 G QD IV
     Dates: start: 20220603
  11. GRANISETRON [Concomitant]
     Active Substance: GRANISETRON
     Dosage: 3 MG QD IV
     Dates: start: 20220603

REACTIONS (2)
  - Insulin autoimmune syndrome [Recovered/Resolved]
  - Drug interaction [Recovered/Resolved]
